FAERS Safety Report 4284164-9 (Version None)
Quarter: 2004Q1

REPORT INFORMATION
  Report Type: 
  Country: None (occurrence: None)
  Receive Date: 20040203
  Receipt Date: 20040122
  Transmission Date: 20041129
  Serious: Yes (Hospitalization)
  Sender: FDA-Public Use
  Company Number: IT-GLAXOSMITHKLINE-B0320850A

PATIENT
  Age: 71 Year
  Sex: Female

DRUGS (2)
  1. AUGMENTIN [Suspect]
     Indication: INFLUENZA
     Dosage: 1G TWICE PER DAY
     Route: 048
     Dates: start: 20040106
  2. ACETYLSALICYLIC ACID SRT [Concomitant]
     Indication: INFLUENZA
     Dosage: 500MG TWICE PER DAY
     Route: 048
     Dates: start: 20040106, end: 20040108

REACTIONS (1)
  - PURPURA [None]
